FAERS Safety Report 7602943-4 (Version None)
Quarter: 2011Q3

REPORT INFORMATION
  Report Type: 
  Country: None (occurrence: None)
  Receive Date: 20110712
  Receipt Date: 20110629
  Transmission Date: 20111222
  Serious: Yes (Other)
  Sender: FDA-Public Use
  Company Number: CO-JNJFOC-20110700862

PATIENT
  Sex: Male

DRUGS (2)
  1. REMICADE [Suspect]
     Route: 042
  2. REMICADE [Suspect]
     Indication: PRODUCT USED FOR UNKNOWN INDICATION
     Route: 042
     Dates: start: 20110620

REACTIONS (7)
  - DYSPNOEA [None]
  - FLUSHING [None]
  - HOT FLUSH [None]
  - NAUSEA [None]
  - TACHYCARDIA [None]
  - CHEST PAIN [None]
  - INFUSION RELATED REACTION [None]
